FAERS Safety Report 24453342 (Version 1)
Quarter: 2024Q4

REPORT INFORMATION
  Report Type: Spontaneous
  Country: US (occurrence: US)
  Receive Date: 20241017
  Receipt Date: 20241017
  Transmission Date: 20250115
  Serious: No
  Sender: SUNOVION
  Company Number: US-SMPA-202407-URV-000994AA

PATIENT
  Age: 63 Year
  Sex: Female
  Weight: 77.098 kg

DRUGS (1)
  1. GEMTESA [Suspect]
     Active Substance: VIBEGRON
     Indication: Pollakiuria
     Dosage: UNK, QD, TAKES THE MEDICATION AT NIGHT
     Route: 065

REACTIONS (1)
  - Pelvic pain [Unknown]
